FAERS Safety Report 10161681 (Version 1)
Quarter: 2014Q2

REPORT INFORMATION
  Report Type: Spontaneous
  Country: US (occurrence: US)
  Receive Date: 20140509
  Receipt Date: 20140509
  Transmission Date: 20141212
  Serious: No
  Sender: FDA-Public Use
  Company Number: US-009507513-1405USA003537

PATIENT
  Age: 46 Year
  Sex: Female

DRUGS (2)
  1. SINGULAIR [Suspect]
     Indication: ASTHMA
     Dosage: 10 MG, QD
     Route: 048
     Dates: start: 2006
  2. ADVAIR [Concomitant]
     Dosage: DOSAGE/STRENGTH/MANUFACTURER UNKNOWN

REACTIONS (1)
  - Blood cholesterol increased [Unknown]
